FAERS Safety Report 11329686 (Version 1)
Quarter: 2015Q3

REPORT INFORMATION
  Report Type: Spontaneous
  Country: US (occurrence: None)
  Receive Date: 20150730
  Receipt Date: 20150730
  Transmission Date: 20151125
  Serious: No
  Sender: FDA-Public Use
  Company Number: None

PATIENT
  Age: 48 Year
  Sex: Female

DRUGS (22)
  1. INSULIN GLARGINE [Suspect]
     Active Substance: INSULIN GLARGINE
     Route: 058
  2. ATOVAQUONE. [Concomitant]
     Active Substance: ATOVAQUONE
  3. PRAVASTATIN [Concomitant]
     Active Substance: PRAVASTATIN\PRAVASTATIN SODIUM
  4. MYCOPHENOLATE [Concomitant]
     Active Substance: MYCOPHENOLIC ACID
  5. FLUDROCORTISONE [Concomitant]
     Active Substance: FLUDROCORTISONE
  6. ITRACONAZOLE. [Concomitant]
     Active Substance: ITRACONAZOLE
  7. PREDNISONE. [Concomitant]
     Active Substance: PREDNISONE
  8. RANITIDINE [Concomitant]
     Active Substance: RANITIDINE\RANITIDINE HYDROCHLORIDE
  9. FUROSEMIDE. [Concomitant]
     Active Substance: FUROSEMIDE
  10. ASPIRIN. [Concomitant]
     Active Substance: ASPIRIN
  11. CEFEPIME [Concomitant]
     Active Substance: CEFEPIME HYDROCHLORIDE
  12. INSULIN ASPART [Concomitant]
     Active Substance: INSULIN ASPART
  13. VALGANCICLOVIR [Concomitant]
     Active Substance: VALGANCICLOVIR
  14. ACETAMINOPHEN. [Concomitant]
     Active Substance: ACETAMINOPHEN
  15. DISTRIROATE [Concomitant]
  16. INSULIN ASPART [Suspect]
     Active Substance: INSULIN ASPART
     Indication: HYPERGLYCAEMIA
     Dosage: 10 UNITS, 5 UNITS, 12 UNITS ?3 TIMES PER DAY?SC
     Route: 058
  17. CITRIC ACID SODIUM CITRATE [Concomitant]
  18. DOCUSATE [Concomitant]
     Active Substance: DOCUSATE
  19. OXYCODONE [Concomitant]
     Active Substance: OXYCODONE
  20. METOPROLOL [Concomitant]
     Active Substance: METOPROLOL
  21. MULTIVITAMIN [Concomitant]
     Active Substance: VITAMINS
  22. TACROLIMUS. [Concomitant]
     Active Substance: TACROLIMUS

REACTIONS (2)
  - Blood glucose decreased [None]
  - Hyperhidrosis [None]

NARRATIVE: CASE EVENT DATE: 20150202
